FAERS Safety Report 7209127-2 (Version None)
Quarter: 2010Q4

REPORT INFORMATION
  Report Type: 
  Country: None (occurrence: None)
  Receive Date: 20101222
  Receipt Date: 20101217
  Transmission Date: 20110411
  Serious: Yes (Hospitalization)
  Sender: FDA-Public Use
  Company Number: 2010SP065048

PATIENT
  Age: 34 Year
  Sex: Female

DRUGS (4)
  1. IMPLANON [Suspect]
     Indication: PRODUCT USED FOR UNKNOWN INDICATION
     Dosage: 1 DF
     Dates: start: 20100101, end: 20100804
  2. REYATAZ [Concomitant]
  3. NORVIR [Concomitant]
  4. TRUVADA [Concomitant]

REACTIONS (1)
  - AUTOIMMUNE HEPATITIS [None]
